FAERS Safety Report 9965198 (Version 1)
Quarter: 2014Q1

REPORT INFORMATION
  Report Type: Report from Study
  Country: US (occurrence: US)
  Receive Date: 20140305
  Receipt Date: 20140305
  Transmission Date: 20141002
  Serious: No
  Sender: FDA-Public Use
  Company Number: US-ABBVIE-13P-163-1125785-00

PATIENT
  Age: 48 Year
  Sex: Female

DRUGS (8)
  1. HUMIRA [Suspect]
     Indication: COLITIS ULCERATIVE
     Dates: start: 20130619, end: 20130711
  2. ASACOL [Concomitant]
     Indication: COLITIS
  3. METFORMIN [Concomitant]
     Indication: DIABETES MELLITUS
  4. METFORMIN [Concomitant]
  5. CALCIUM/VITAMIN D [Concomitant]
     Indication: PROPHYLAXIS
     Dosage: 1000MG/2000IU
  6. CALCIUM/VITAMIN D [Concomitant]
     Indication: VITAMIN D DECREASED
  7. AMLODIPINE BESYLATE [Concomitant]
     Indication: HYPERTENSION
     Dosage: 10/20MG
  8. ALEVE [Concomitant]
     Indication: ARTHRALGIA

REACTIONS (4)
  - Throat irritation [Not Recovered/Not Resolved]
  - Ear pain [Not Recovered/Not Resolved]
  - Otorrhoea [Not Recovered/Not Resolved]
  - Facial pain [Not Recovered/Not Resolved]
